FAERS Safety Report 4477161-1 (Version None)
Quarter: 2004Q4

REPORT INFORMATION
  Report Type: 
  Country: None (occurrence: None)
  Receive Date: 20041013
  Receipt Date: 20040818
  Transmission Date: 20050328
  Serious: Yes (Hospitalization)
  Sender: FDA-Public Use
  Company Number: FR-YAMANOUCHI-YEHQ20040274

PATIENT

DRUGS (2)
  1. LOCOID (HYDROCORTISONE BURYRATE) [Suspect]
     Indication: ECZEMA
     Dosage: TP
     Route: 064
     Dates: start: 20040301
  2. NERISONE [Suspect]
     Dosage: TP
     Route: 064
     Dates: start: 20040331

REACTIONS (5)
  - CONDITION AGGRAVATED [None]
  - DERMATITIS CONTACT [None]
  - ECZEMA [None]
  - OEDEMA [None]
  - PRURITUS [None]
